FAERS Safety Report 19154852 (Version 4)
Quarter: 2021Q3

REPORT INFORMATION
  Report Type: Report from Study
  Country: DK (occurrence: DK)
  Receive Date: 20210419
  Receipt Date: 20210707
  Transmission Date: 20211014
  Serious: Yes (Hospitalization, Disabling)
  Sender: FDA-Public Use
  Company Number: DK-AMGEN INC.-DNKCT2021057544

PATIENT
  Age: 29 Year
  Sex: Female

DRUGS (11)
  1. MIRENA [Concomitant]
     Active Substance: LEVONORGESTREL
     Dosage: 20 MICROGRAM
     Dates: start: 2017
  2. TRADOLAN [Concomitant]
     Active Substance: TRAMADOL
     Dosage: 50 MILLIGRAM
     Dates: start: 20210323, end: 20210423
  3. ERENUMAB [Suspect]
     Active Substance: ERENUMAB
     Indication: MIGRAINE
     Dosage: 1 MILLILITER
     Route: 058
     Dates: start: 20210325
  4. ELETRIPTAN. [Concomitant]
     Active Substance: ELETRIPTAN
     Dosage: 40 MILLIGRAM
     Dates: start: 2018
  5. PARACETAMOL [Concomitant]
     Active Substance: ACETAMINOPHEN
     Dosage: 1000 MILLIGRAM
     Dates: start: 2017
  6. TOPIRAMAT [Concomitant]
     Active Substance: TOPIRAMATE
     Dosage: 25 MILLIGRAM
     Dates: start: 202012
  7. IBUPROFEN. [Suspect]
     Active Substance: IBUPROFEN
     Indication: PRODUCT USED FOR UNKNOWN INDICATION
     Dosage: 400 MILLIGRAM
     Route: 065
     Dates: start: 2017
  8. LISINOPRIL. [Concomitant]
     Active Substance: LISINOPRIL
     Dosage: 20 MILLIGRAM
     Dates: start: 20201119
  9. RIZATRIPTAN. [Concomitant]
     Active Substance: RIZATRIPTAN
     Dosage: 10 MILLIGRAM
     Dates: start: 202012
  10. OVISON [Concomitant]
     Dosage: 1 MILLIGRAM
     Dates: start: 2015
  11. ACETYLSALICYLIC ACID;CAFFEINE [Concomitant]
     Dosage: UNK
     Dates: start: 2017

REACTIONS (2)
  - Inflammatory bowel disease [Recovered/Resolved]
  - Gastric ulcer [Not Recovered/Not Resolved]

NARRATIVE: CASE EVENT DATE: 20210325
